FAERS Safety Report 6239580-2 (Version None)
Quarter: 2009Q2

REPORT INFORMATION
  Report Type: 
  Country: None (occurrence: None)
  Receive Date: 20090619
  Receipt Date: 20090608
  Transmission Date: 20091009
  Serious: Yes (Hospitalization, Other)
  Sender: FDA-Public Use
  Company Number: 2009AP001863

PATIENT
  Sex: Female

DRUGS (9)
  1. MYCOPHENOLATE MOFETIL [Suspect]
     Indication: DRUG USE FOR UNKNOWN INDICATION
     Dosage: 750 MG; BID; 250 MG; QID
     Dates: start: 20080919
  2. ARANESP [Suspect]
     Indication: NEPHROGENIC ANAEMIA
     Dosage: 20 UG; SC; QW; 40 UG; SC; QW; 60 UG; SC; QW
     Route: 058
     Dates: start: 20060601, end: 20070826
  3. ARANESP [Suspect]
     Indication: NEPHROGENIC ANAEMIA
     Dosage: 20 UG; SC; QW; 40 UG; SC; QW; 60 UG; SC; QW
     Route: 058
     Dates: start: 20081016, end: 20081109
  4. ARANESP [Suspect]
     Indication: NEPHROGENIC ANAEMIA
     Dosage: 20 UG; SC; QW; 40 UG; SC; QW; 60 UG; SC; QW
     Route: 058
     Dates: start: 20081124, end: 20081201
  5. ARANESP [Suspect]
     Indication: NEPHROGENIC ANAEMIA
     Dosage: 20 UG; SC; QW; 40 UG; SC; QW; 60 UG; SC; QW
     Route: 058
     Dates: start: 20060601
  6. ARANESP [Suspect]
     Indication: NEPHROGENIC ANAEMIA
     Dosage: 20 UG; SC; QW; 40 UG; SC; QW; 60 UG; SC; QW
     Route: 058
     Dates: start: 20081110
  7. EPREX [Suspect]
     Indication: NEPHROGENIC ANAEMIA
     Dosage: 12000 IU; QW; 10000 IU; QW; IV
     Dates: start: 20080314, end: 20080917
  8. EPREX [Suspect]
     Indication: NEPHROGENIC ANAEMIA
     Dosage: 12000 IU; QW; 10000 IU; QW; IV
     Dates: start: 20080207
  9. TACROLIMUS [Suspect]
     Indication: DRUG USE FOR UNKNOWN INDICATION
     Dosage: 3.5 MG; BID; 2.5 MG; QD; 3.5 MG; QD; 3 MG; QD
     Dates: start: 20080919

REACTIONS (3)
  - APLASIA PURE RED CELL [None]
  - DRUG INEFFECTIVE [None]
  - RENAL TRANSPLANT [None]
